FAERS Safety Report 7659901-3 (Version None)
Quarter: 2011Q3

REPORT INFORMATION
  Report Type: 
  Country: None (occurrence: None)
  Receive Date: 20110805
  Receipt Date: 20110804
  Transmission Date: 20111222
  Serious: Yes (Life-Threatening, Hospitalization)
  Sender: FDA-Public Use
  Company Number: US-B.I. PHARMACEUTICALS,INC./RIDGEFIELD-2011-BP-07743BP

PATIENT
  Age: 63 Year
  Sex: Male
  Weight: 102.3 kg

DRUGS (4)
  1. BENICAR [Concomitant]
     Dosage: 40 MG
  2. TOPROL-XL [Concomitant]
     Dosage: 200 MG
  3. PRADAXA [Suspect]
     Indication: ATRIAL FIBRILLATION
     Dosage: 300 MG
  4. CADUET [Concomitant]
     Dosage: 40/5MG

REACTIONS (2)
  - HAEMORRHAGE [None]
  - PERICARDIAL EFFUSION [None]
